FAERS Safety Report 10050242 (Version 1)
Quarter: 2014Q2

REPORT INFORMATION
  Report Type: Spontaneous
  Country: US (occurrence: US)
  Receive Date: 20140401
  Receipt Date: 20140401
  Transmission Date: 20141212
  Serious: No
  Sender: FDA-Public Use
  Company Number: US-B.I. PHARMACEUTICALS,INC./RIDGEFIELD-2014-BI-12914BP

PATIENT
  Age: 67 Year
  Sex: Male
  Weight: 64 kg

DRUGS (13)
  1. PRADAXA [Suspect]
     Indication: ATRIAL FIBRILLATION
     Dosage: 300 MG
     Route: 048
     Dates: start: 201402
  2. ENALAPRIL [Concomitant]
     Indication: ATRIAL FIBRILLATION
     Dosage: 40 MG
     Route: 048
  3. ASPIRIN [Concomitant]
     Dosage: 81 MG
     Route: 048
  4. FENOFIBRATE [Concomitant]
     Indication: BLOOD TRIGLYCERIDES INCREASED
     Dosage: 160 MG
     Route: 048
  5. GLIMEPIRIDE [Concomitant]
     Indication: DIABETES MELLITUS
     Dosage: 8 MG
     Route: 048
  6. METFORMIN [Concomitant]
     Indication: DIABETES MELLITUS
     Dosage: 1000 MG
     Route: 048
  7. METOPROLOL [Concomitant]
     Indication: ATRIAL FIBRILLATION
     Dosage: 100 MG
     Route: 048
  8. SERTRALINE [Concomitant]
     Indication: DEPRESSION
     Dosage: 100 MG
     Route: 048
  9. FLONASE [Concomitant]
     Indication: ASTHMA
     Dosage: FORMULATION: NASAL SPRAY
     Route: 045
  10. JANUVIA [Concomitant]
     Indication: DIABETES MELLITUS
     Dosage: 50 MG
     Route: 048
  11. AMIODARONE [Concomitant]
     Indication: ATRIAL FLUTTER
     Dosage: 400 MG
     Route: 048
  12. SIMVASTATIN [Concomitant]
     Indication: BLOOD CHOLESTEROL INCREASED
     Dosage: 20 MG
     Route: 048
  13. ADVAIR [Concomitant]
     Indication: ASTHMA
     Dosage: FORMULATION: INHALATION AEROSOL, DOSE PER APPLICATION: 250MCG/50MCG, DAILY DOSE: 500MCG/100MCG
     Route: 055

REACTIONS (4)
  - Cough [Not Recovered/Not Resolved]
  - Heart rate decreased [Not Recovered/Not Resolved]
  - Blood pressure increased [Not Recovered/Not Resolved]
  - Haemoptysis [Not Recovered/Not Resolved]
